FAERS Safety Report 14784877 (Version 1)
Quarter: 2018Q2

REPORT INFORMATION
  Report Type: Spontaneous
  Country: US (occurrence: US)
  Receive Date: 20180418
  Receipt Date: 20180418
  Transmission Date: 20180711
  Serious: Yes (Other)
  Sender: FDA-Public Use
  Company Number: None

PATIENT
  Age: 42 Year
  Sex: Male
  Weight: 92.25 kg

DRUGS (7)
  1. CLUB 13 KRATOM MAENG DA RED 90GM [Suspect]
     Active Substance: MITRAGYNINE\HERBALS
     Indication: ANXIETY
     Dosage: ?          QUANTITY:90 GRAMS;?
     Route: 048
     Dates: start: 20180330, end: 20180405
  2. TUMS [Concomitant]
     Active Substance: CALCIUM CARBONATE
  3. CLUB 13 KRATOM MAENG DA RED 90GM [Suspect]
     Active Substance: MITRAGYNINE\HERBALS
     Indication: ARTHRALGIA
     Dosage: ?          QUANTITY:90 GRAMS;?
     Route: 048
     Dates: start: 20180330, end: 20180405
  4. IMODIUM [Concomitant]
     Active Substance: LOPERAMIDE HYDROCHLORIDE
  5. PEPTO-BISMOL [Concomitant]
     Active Substance: BISMUTH SUBSALICYLATE
  6. DULOXETINE. [Concomitant]
     Active Substance: DULOXETINE
  7. IBUPROFEN. [Concomitant]
     Active Substance: IBUPROFEN

REACTIONS (4)
  - Impaired work ability [None]
  - Muscle spasms [None]
  - Diarrhoea [None]
  - Abdominal pain upper [None]

NARRATIVE: CASE EVENT DATE: 20180331
